FAERS Safety Report 6908613-X (Version None)
Quarter: 2010Q3

REPORT INFORMATION
  Report Type: 
  Country: None (occurrence: None)
  Receive Date: 20100805
  Receipt Date: 20100726
  Transmission Date: 20110219
  Serious: Yes (Other)
  Sender: FDA-Public Use
  Company Number: US-PFIZER INC-2010093382

PATIENT
  Age: 59 Year
  Sex: Female

DRUGS (3)
  1. IDARUBICIN HCL [Suspect]
     Indication: BREAST CANCER
     Dosage: UNK
  2. TAXOTERE [Suspect]
     Indication: BREAST CANCER
     Dosage: UNK
     Route: 040
  3. CYTOXAN [Suspect]
     Indication: BREAST CANCER
     Dosage: UNK
     Route: 065

REACTIONS (1)
  - TINNITUS [None]
